FAERS Safety Report 11893311 (Version 2)
Quarter: 2016Q1

REPORT INFORMATION
  Report Type: Spontaneous
  Country: US (occurrence: US)
  Receive Date: 20160106
  Receipt Date: 20160204
  Transmission Date: 20160526
  Serious: Yes (Death)
  Sender: FDA-Public Use
  Company Number: US-TEVA-622427USA

PATIENT
  Sex: Female

DRUGS (2)
  1. FENTORA [Suspect]
     Active Substance: FENTANYL CITRATE
     Indication: PAIN
     Dosage: 1 TABLET BYCCALLY/SUBLINGUAL X 1 THEN MAY REPEAT X1 30 MIN DAILY PRN
     Route: 002
  2. MORPHINE [Concomitant]
     Active Substance: MORPHINE
     Indication: PAIN
     Dosage: CADD PUMP
     Route: 065

REACTIONS (2)
  - Product use issue [Unknown]
  - Death [Fatal]
